FAERS Safety Report 5971914-6 (Version None)
Quarter: 2008Q4

REPORT INFORMATION
  Report Type: 
  Country: None (occurrence: None)
  Receive Date: 20081201
  Receipt Date: 20081124
  Transmission Date: 20090506
  Serious: Yes (Hospitalization)
  Sender: FDA-Public Use
  Company Number: US-BIOGENIDEC-2008BI020487

PATIENT
  Age: 61 Year
  Sex: Female

DRUGS (2)
  1. AVONEX [Suspect]
     Indication: MULTIPLE SCLEROSIS
     Route: 030
     Dates: start: 20000917, end: 20060208
  2. AVONEX [Suspect]
     Route: 030
     Dates: start: 20070228

REACTIONS (8)
  - ANAEMIA [None]
  - BLOOD MAGNESIUM DECREASED [None]
  - BLOOD POTASSIUM DECREASED [None]
  - CANDIDIASIS [None]
  - INFECTION [None]
  - LARYNGEAL DISORDER [None]
  - ORAL HERPES [None]
  - PNEUMONIA [None]
